FAERS Safety Report 7566030-6 (Version None)
Quarter: 2011Q2

REPORT INFORMATION
  Report Type: 
  Country: None (occurrence: None)
  Receive Date: 20110616
  Receipt Date: 20110513
  Transmission Date: 20111010
  Serious: Yes (Other)
  Sender: FDA-Public Use
  Company Number: AUR-APL-2011-01708

PATIENT
  Age: 53 Year
  Sex: Female
  Weight: 70 kg

DRUGS (5)
  1. METOCLOPRAMIDE [Concomitant]
  2. EFFORTIL TROFEN [Concomitant]
  3. MIRTAZAPINE [Suspect]
     Dosage: 0-1/2-DAILY-ORAL
     Route: 048
     Dates: start: 20100801
  4. PANTOPRAZOLE [Concomitant]
  5. ENOXAPARIN SODIUM [Concomitant]

REACTIONS (4)
  - PYREXIA [None]
  - HYPOTENSION [None]
  - DIZZINESS [None]
  - FALL [None]
